FAERS Safety Report 23233282 (Version 2)
Quarter: 2023Q4

REPORT INFORMATION
  Report Type: Spontaneous
  Country: US (occurrence: US)
  Receive Date: 20231128
  Receipt Date: 20231130
  Transmission Date: 20240109
  Serious: No
  Sender: FDA-Public Use
  Company Number: US-AMGEN-USASP2023210945

PATIENT
  Age: 75 Year
  Sex: Female

DRUGS (2)
  1. TAVNEOS [Suspect]
     Active Substance: AVACOPAN
     Indication: Arteritis
     Dosage: 30 MILLIGRAM, BID (30MG BID)
     Route: 065
     Dates: start: 20220118
  2. TAVNEOS [Suspect]
     Active Substance: AVACOPAN
     Indication: Off label use

REACTIONS (3)
  - Oropharyngeal pain [Unknown]
  - Cough [Unknown]
  - Off label use [Unknown]

NARRATIVE: CASE EVENT DATE: 20220118
